FAERS Safety Report 17608171 (Version 1)
Quarter: 2020Q1

REPORT INFORMATION
  Report Type: Spontaneous
  Country: US (occurrence: US)
  Receive Date: 20200331
  Receipt Date: 20200331
  Transmission Date: 20200409
  Serious: No
  Sender: FDA-Public Use
  Company Number: US-ARBOR PHARMACEUTICALS, LLC-US-2019ARB000701

PATIENT
  Age: 8 Year
  Sex: Female

DRUGS (2)
  1. SKLICE [Suspect]
     Active Substance: IVERMECTIN
     Dosage: PARTIAL TUBE
     Route: 061
     Dates: start: 20190411, end: 20190411
  2. SKLICE [Suspect]
     Active Substance: IVERMECTIN
     Indication: INFESTATION
     Dosage: PARTIAL TUBE
     Route: 061
     Dates: start: 20190410, end: 20190410

REACTIONS (2)
  - Wrong technique in product usage process [Unknown]
  - Product use in unapproved indication [Unknown]

NARRATIVE: CASE EVENT DATE: 20190411
